FAERS Safety Report 8506190-3 (Version None)
Quarter: 2012Q3

REPORT INFORMATION
  Report Type: 
  Country: None (occurrence: None)
  Receive Date: 20120712
  Receipt Date: 20120628
  Transmission Date: 20120928
  Serious: Yes (Other)
  Sender: FDA-Public Use
  Company Number: DE-ROCHE-1082957

PATIENT
  Sex: Female
  Weight: 64 kg

DRUGS (6)
  1. HYDROCHLOROTHIAZIDE [Concomitant]
     Route: 048
  2. OMEPRAZOLE [Concomitant]
     Route: 048
  3. RAMIPRIL [Concomitant]
     Indication: HYPERTENSION
     Route: 048
  4. HERCEPTIN [Suspect]
     Indication: BREAST CANCER
     Dosage: 384 MG/LBS
     Route: 042
     Dates: start: 20120104
  5. PACLITAXEL [Suspect]
     Indication: METASTASES TO LYMPH NODES
     Dosage: 183 MG/LBS
     Route: 042
     Dates: start: 20120111, end: 20120328
  6. DIPYRONE TAB [Concomitant]
     Indication: PAIN
     Dosage: 407UR
     Route: 048

REACTIONS (5)
  - METASTASES TO LYMPH NODES [None]
  - PANCREATITIS CHRONIC [None]
  - HYPERTENSION [None]
  - HYPERCHOLESTEROLAEMIA [None]
  - CHOLESTASIS [None]
